FAERS Safety Report 5789512-6 (Version None)
Quarter: 2008Q2

REPORT INFORMATION
  Report Type: 
  Country: None (occurrence: None)
  Receive Date: 20080626
  Receipt Date: 20080422
  Transmission Date: 20081010
  Serious: No
  Sender: FDA-Public Use
  Company Number: US-ASTRAZENECA-2008UW00523

PATIENT
  Age: 53 Year
  Sex: Female
  Weight: 63.5 kg

DRUGS (5)
  1. PULMICORT FLEXHALER [Suspect]
     Indication: ASTHMA
     Route: 055
  2. SINGULAIR [Concomitant]
  3. ALLEGRA [Concomitant]
  4. NASONEX [Concomitant]
  5. NEXIUM [Concomitant]

REACTIONS (2)
  - ASTHMA [None]
  - MEDICAL DEVICE COMPLICATION [None]
